FAERS Safety Report 21022026 (Version 1)
Quarter: 2022Q3

REPORT INFORMATION
  Report Type: Report from Study
  Country: BR (occurrence: BR)
  Receive Date: 20220629
  Receipt Date: 20220629
  Transmission Date: 20221027
  Serious: Yes (Other)
  Sender: FDA-Public Use
  Company Number: BR-NOVARTISPH-NVSC2021BR230021

PATIENT
  Age: 73 Year
  Sex: Female

DRUGS (6)
  1. RITUXIMAB [Suspect]
     Active Substance: RITUXIMAB
     Indication: Rheumatoid arthritis
     Dosage: UNK
     Route: 041
     Dates: start: 20210928
  2. ROSUVASTATIN [Suspect]
     Active Substance: ROSUVASTATIN
     Indication: Product used for unknown indication
     Dosage: UNK
     Route: 065
  3. PREDNISONE [Suspect]
     Active Substance: PREDNISONE
     Indication: Hypersensitivity
     Dosage: UNK
     Route: 065
  4. INSULIN NOS [Concomitant]
     Active Substance: INSULIN NOS
     Indication: Product used for unknown indication
     Dosage: UNK
     Route: 065
  5. LEVOTHYROXINE [Concomitant]
     Active Substance: LEVOTHYROXINE
     Indication: Product used for unknown indication
     Dosage: UNK
     Route: 065
  6. MABTHERA [Concomitant]
     Active Substance: RITUXIMAB
     Indication: Rheumatoid arthritis
     Dosage: UNK
     Route: 065

REACTIONS (23)
  - Blindness unilateral [Not Recovered/Not Resolved]
  - Asphyxia [Not Recovered/Not Resolved]
  - Skin discolouration [Not Recovered/Not Resolved]
  - Swelling face [Not Recovered/Not Resolved]
  - Dysphagia [Not Recovered/Not Resolved]
  - Eye disorder [Not Recovered/Not Resolved]
  - Pharyngeal hypoaesthesia [Not Recovered/Not Resolved]
  - Vocal cord disorder [Not Recovered/Not Resolved]
  - Peripheral swelling [Not Recovered/Not Resolved]
  - Ear pain [Not Recovered/Not Resolved]
  - Cough [Not Recovered/Not Resolved]
  - Rash macular [Recovering/Resolving]
  - Rash [Not Recovered/Not Resolved]
  - Tinnitus [Not Recovered/Not Resolved]
  - Malaise [Not Recovered/Not Resolved]
  - Fear [Unknown]
  - Ear swelling [Unknown]
  - Joint swelling [Unknown]
  - Hypersensitivity [Unknown]
  - Mouth swelling [Unknown]
  - Anger [Unknown]
  - Flushing [Unknown]
  - Pruritus [Unknown]

NARRATIVE: CASE EVENT DATE: 20210928
